FAERS Safety Report 11222981 (Version 2)
Quarter: 2015Q3

REPORT INFORMATION
  Report Type: Spontaneous
  Country: US (occurrence: US)
  Receive Date: 20150626
  Receipt Date: 20150716
  Transmission Date: 20151125
  Serious: Yes (Hospitalization, Other)
  Sender: FDA-Public Use
  Company Number: US-KERYX BIOPHARMA UK LTD-2015US000976

PATIENT

DRUGS (3)
  1. AURYXIA [Suspect]
     Active Substance: TETRAFERRIC TRICITRATE DECAHYDRATE
     Indication: IRON DEFICIENCY ANAEMIA
     Dosage: 2 TAB, TID
     Route: 048
     Dates: start: 201503, end: 201505
  2. AURYXIA [Suspect]
     Active Substance: TETRAFERRIC TRICITRATE DECAHYDRATE
     Dosage: TITRATED 3 TAB, TID MEALS
     Route: 048
     Dates: start: 201505, end: 20150609
  3. FERRLECIT                          /00023541/ [Concomitant]
     Indication: MINERAL SUPPLEMENTATION
     Dosage: UNK
     Route: 042
     Dates: start: 201504, end: 20150505

REACTIONS (3)
  - Transferrin saturation increased [Not Recovered/Not Resolved]
  - Colitis [Not Recovered/Not Resolved]
  - Serum ferritin increased [Not Recovered/Not Resolved]

NARRATIVE: CASE EVENT DATE: 201504
